FAERS Safety Report 9664496 (Version 3)
Quarter: 2017Q4

REPORT INFORMATION
  Report Type: Spontaneous
  Country: FR (occurrence: FR)
  Receive Date: 20131101
  Receipt Date: 20171009
  Transmission Date: 20180321
  Serious: Yes (Hospitalization, Other)
  Sender: FDA-Public Use
  Company Number: FR-ELI_LILLY_AND_COMPANY-FR201310006635

PATIENT
  Age: 62 Year
  Sex: Male
  Weight: 90 kg

DRUGS (7)
  1. ALIMTA [Suspect]
     Active Substance: PEMETREXED DISODIUM
     Dosage: 500 MG/M2, CYCLICAL
     Route: 042
     Dates: start: 20130109, end: 20130626
  2. METFORMINE [Concomitant]
     Active Substance: METFORMIN HYDROCHLORIDE
     Indication: TYPE 2 DIABETES MELLITUS
     Dosage: 1000 MG, TID
     Route: 048
     Dates: end: 201307
  3. DEXAMETHASONE. [Concomitant]
     Active Substance: DEXAMETHASONE
     Indication: PREMEDICATION
  4. FOLIC ACID. [Concomitant]
     Active Substance: FOLIC ACID
     Indication: PREMEDICATION
  5. VITAMIN B12 [Concomitant]
     Active Substance: CYANOCOBALAMIN
     Indication: PREMEDICATION
  6. ALIMTA [Suspect]
     Active Substance: PEMETREXED DISODIUM
     Indication: BRONCHIAL CARCINOMA
     Dosage: 1000 MG, CYCLICAL
     Route: 042
     Dates: start: 20130109, end: 20130626
  7. CARBOPLATINE [Concomitant]
     Active Substance: CARBOPLATIN
     Dosage: UNK
     Route: 042
     Dates: start: 20130109, end: 20130220

REACTIONS (4)
  - Renal tubular necrosis [Recovering/Resolving]
  - Off label use [Recovered/Resolved]
  - Nephrogenic diabetes insipidus [Recovered/Resolved]
  - Renal failure [Recovering/Resolving]

NARRATIVE: CASE EVENT DATE: 201307
